FAERS Safety Report 5484415-9 (Version None)
Quarter: 2007Q4

REPORT INFORMATION
  Report Type: 
  Country: None (occurrence: None)
  Receive Date: 20071010
  Receipt Date: 20070925
  Transmission Date: 20080405
  Serious: Yes (Life-Threatening)
  Sender: FDA-Public Use
  Company Number: 2007S1007322

PATIENT
  Age: 42 Year
  Sex: Male
  Weight: 70.3075 kg

DRUGS (12)
  1. PHENYTEK [Suspect]
     Indication: FRONTAL LOBE EPILEPSY
     Dosage: 400 MG; AT BEDTIME; ORAL
     Route: 048
     Dates: start: 20051001
  2. PHENYTEK [Suspect]
     Indication: FRONTAL LOBE EPILEPSY
     Dosage: 50 MG; AT BEDTIME; ORAL
     Route: 048
     Dates: start: 20051001
  3. DIPHENHYDRAMINE (CON.) [Concomitant]
  4. LEVOXYL (CON.) [Concomitant]
  5. PROTONIX /01263201/ (CON.) [Concomitant]
  6. CEPHALEXIN /00145501/ (CON.) [Concomitant]
  7. ST MARY'S THISTLE (CON.) [Concomitant]
  8. GINKGO /01003101/ (CON.) [Concomitant]
  9. LECITHIN (CON.) [Concomitant]
  10. GARLIC /01570501/ (CON.) [Concomitant]
  11. MULTIVITAMINS (CON.) [Concomitant]
  12. ACIDOPHILUS (CON.) [Concomitant]

REACTIONS (9)
  - ANTICONVULSANT DRUG LEVEL ABOVE THERAPEUTIC [None]
  - FRONTAL LOBE EPILEPSY [None]
  - GRAND MAL CONVULSION [None]
  - HYPERPLASIA [None]
  - HYPOAESTHESIA [None]
  - INCORRECT DOSE ADMINISTERED [None]
  - PARAESTHESIA [None]
  - TREATMENT NONCOMPLIANCE [None]
  - WRONG TECHNIQUE IN DRUG USAGE PROCESS [None]
